FAERS Safety Report 13282184 (Version 1)
Quarter: 2017Q1

REPORT INFORMATION
  Report Type: Spontaneous
  Country: US (occurrence: US)
  Receive Date: 20170301
  Receipt Date: 20170301
  Transmission Date: 20170428
  Serious: Yes (Hospitalization)
  Sender: FDA-Public Use
  Company Number: None

PATIENT
  Sex: Female

DRUGS (1)
  1. AMIODARONE [Suspect]
     Active Substance: AMIODARONE

REACTIONS (6)
  - Extravasation [None]
  - Blister [None]
  - Infusion site swelling [None]
  - Infusion site pain [None]
  - Infusion site extravasation [None]
  - Infusion site erythema [None]

NARRATIVE: CASE EVENT DATE: 20150217
